FAERS Safety Report 11241504 (Version 1)
Quarter: 2015Q3

REPORT INFORMATION
  Report Type: Spontaneous
  Country: US (occurrence: US)
  Receive Date: 20150706
  Receipt Date: 20150706
  Transmission Date: 20151125
  Serious: No
  Sender: FDA-Public Use
  Company Number: US-DUCHESNAY INC.-1040357

PATIENT
  Age: 42 Year
  Sex: Female

DRUGS (2)
  1. HYPERTENSION MEDICATION [Concomitant]
     Active Substance: UNSPECIFIED INGREDIENT
  2. DICLEGIS [Suspect]
     Active Substance: DOXYLAMINE SUCCINATE\PYRIDOXINE HYDROCHLORIDE
     Route: 048
     Dates: start: 20150624, end: 20150624

REACTIONS (2)
  - Somnolence [Recovered/Resolved]
  - Off label use [None]

NARRATIVE: CASE EVENT DATE: 20150624
